FAERS Safety Report 17745296 (Version 1)
Quarter: 2020Q2

REPORT INFORMATION
  Report Type: Spontaneous
  Country: US (occurrence: US)
  Receive Date: 20200505
  Receipt Date: 20200505
  Transmission Date: 20200714
  Serious: Yes (Life-Threatening, Hospitalization, Disabling)
  Sender: FDA-Public Use
  Company Number: None

PATIENT
  Age: 50 Year
  Sex: Female
  Weight: 132.3 kg

DRUGS (11)
  1. SECUKINUMAB. [Suspect]
     Active Substance: SECUKINUMAB
     Indication: PSORIASIS
     Dosage: ?          OTHER FREQUENCY:MONTHLY;?
     Route: 058
  2. ASPIRIN. [Concomitant]
     Active Substance: ASPIRIN
  3. METFORMIN [Concomitant]
     Active Substance: METFORMIN HYDROCHLORIDE
  4. AMLODIPINE [Concomitant]
     Active Substance: AMLODIPINE BESYLATE
  5. ALPRAZOLAM. [Concomitant]
     Active Substance: ALPRAZOLAM
  6. OXYCODONE [Concomitant]
     Active Substance: OXYCODONE
  7. ATORVASTATIN [Concomitant]
     Active Substance: ATORVASTATIN
  8. MONTELUKAST [Concomitant]
     Active Substance: MONTELUKAST SODIUM
  9. PREGABALIN. [Concomitant]
     Active Substance: PREGABALIN
  10. QUETIAPINE. [Concomitant]
     Active Substance: QUETIAPINE
  11. LEVOTHYROXINE. [Concomitant]
     Active Substance: LEVOTHYROXINE

REACTIONS (15)
  - Headache [None]
  - Pneumonia [None]
  - Hemiplegia [None]
  - Confusional state [None]
  - Cerebral infarction [None]
  - Pyrexia [None]
  - Respiratory failure [None]
  - Brain midline shift [None]
  - Depressed level of consciousness [None]
  - Seizure [None]
  - Streptococcal infection [None]
  - Encephalomalacia [None]
  - Septic embolus [None]
  - Acute kidney injury [None]
  - Vasogenic cerebral oedema [None]

NARRATIVE: CASE EVENT DATE: 20190226
